FAERS Safety Report 5698016-0 (Version None)
Quarter: 2008Q2

REPORT INFORMATION
  Report Type: 
  Country: None (occurrence: None)
  Receive Date: 20080408
  Receipt Date: 20080327
  Transmission Date: 20081010
  Serious: Yes (Death, Hospitalization)
  Sender: FDA-Public Use
  Company Number: BE-PFIZER INC-2007107622

PATIENT
  Sex: Male
  Weight: 56.2 kg

DRUGS (9)
  1. MARAVIROC [Suspect]
     Indication: HIV INFECTION
     Route: 048
  2. RITONAVIR [Concomitant]
     Route: 048
  3. COMBIVIR [Concomitant]
     Route: 048
  4. TIPRANAVIR [Concomitant]
     Route: 048
  5. BACTRIM [Concomitant]
     Route: 048
  6. TRAMADOL HCL [Concomitant]
     Route: 048
  7. FUROSEMIDE [Concomitant]
     Route: 048
  8. SPIRONOLACTONE [Concomitant]
     Route: 048
  9. METHADONE HCL [Concomitant]
     Route: 048

REACTIONS (4)
  - LYMPHOMA [None]
  - MULTI-ORGAN FAILURE [None]
  - PSORIASIS [None]
  - SEPTIC SHOCK [None]
